FAERS Safety Report 9397532 (Version 1)
Quarter: 2013Q3

REPORT INFORMATION
  Report Type: Report from Study
  Country: CA (occurrence: CA)
  Receive Date: 20130712
  Receipt Date: 20130712
  Transmission Date: 20140515
  Serious: Yes (Hospitalization)
  Sender: FDA-Public Use
  Company Number: CA-JNJFOC-20130706161

PATIENT
  Sex: Male

DRUGS (7)
  1. REMICADE [Suspect]
     Indication: CROHN^S DISEASE
     Route: 042
     Dates: start: 20130506
  2. REMICADE [Suspect]
     Indication: CROHN^S DISEASE
     Route: 042
     Dates: start: 20090505
  3. DIOVAN [Concomitant]
     Route: 065
  4. ACETYL SALICYLIC ACID [Concomitant]
     Route: 065
  5. PANTOLOC [Concomitant]
     Route: 065
  6. METHOTREXATE [Concomitant]
     Route: 065
  7. NITROGLYCERIN [Concomitant]
     Route: 065

REACTIONS (1)
  - Cholecystectomy [Unknown]
